FAERS Safety Report 13267568 (Version 1)
Quarter: 2017Q1

REPORT INFORMATION
  Report Type: Spontaneous
  Country: US (occurrence: US)
  Receive Date: 20170224
  Receipt Date: 20170224
  Transmission Date: 20170428
  Serious: No
  Sender: FDA-Public Use
  Company Number: US-PFIZER INC-2017075544

PATIENT
  Sex: Male

DRUGS (2)
  1. EUCRISA [Suspect]
     Active Substance: CRISABOROLE
     Indication: WOUND
  2. EUCRISA [Suspect]
     Active Substance: CRISABOROLE
     Indication: HAEMORRHOIDS
     Dosage: UNK

REACTIONS (2)
  - Product use issue [Unknown]
  - Application site pruritus [Unknown]
